FAERS Safety Report 12582389 (Version 1)
Quarter: 2016Q3

REPORT INFORMATION
  Report Type: Spontaneous
  Country: US (occurrence: None)
  Receive Date: 20160721
  Receipt Date: 20160721
  Transmission Date: 20161109
  Serious: No
  Sender: FDA-Public Use
  Company Number: None

PATIENT
  Age: 30 Year
  Sex: Male
  Weight: 111.13 kg

DRUGS (4)
  1. VITAMIN B12 [Concomitant]
     Active Substance: CYANOCOBALAMIN
  2. ALLOPURINOL, 100 MG [Suspect]
     Active Substance: ALLOPURINOL
     Indication: GOUT
     Dosage: 1 TABLET(S) TWICE A DAY TAKEN BY MOUTH
     Route: 048
     Dates: start: 20150609
  3. TURMERIC [Concomitant]
     Active Substance: TURMERIC
  4. PROBIOTICS [Concomitant]
     Active Substance: PROBIOTICS NOS

REACTIONS (7)
  - Asthenia [None]
  - Gout [None]
  - Pain [None]
  - Hypoaesthesia [None]
  - Pruritus [None]
  - Palmar erythema [None]
  - Hyperaesthesia [None]

NARRATIVE: CASE EVENT DATE: 20160720
